FAERS Safety Report 6155743-9 (Version None)
Quarter: 2009Q2

REPORT INFORMATION
  Report Type: 
  Country: None (occurrence: None)
  Receive Date: 20090415
  Receipt Date: 20090409
  Transmission Date: 20091009
  Serious: Yes (Death, Hospitalization)
  Sender: FDA-Public Use
  Company Number: JP-BRISTOL-MYERS SQUIBB COMPANY-14432991

PATIENT
  Age: 39 Year
  Sex: Female

DRUGS (15)
  1. TAXOL [Suspect]
     Indication: BREAST CANCER
     Dosage: DRUG WITHDRAWN DATE 02DEC2008
     Route: 042
     Dates: start: 20070928, end: 20081104
  2. AVASTIN [Suspect]
     Indication: BREAST CANCER
     Dosage: DRUG WITHDRAWN DATE 02DEC2008
     Route: 042
     Dates: start: 20070928, end: 20081104
  3. DEXART [Suspect]
     Indication: BREAST CANCER
     Route: 042
     Dates: start: 20070928, end: 20081104
  4. RINDERON [Suspect]
     Indication: MALAISE
     Route: 048
     Dates: start: 20081122
  5. LASIX [Suspect]
     Indication: OEDEMA
     Route: 048
     Dates: start: 20070928, end: 20081104
  6. FEMARA [Suspect]
     Indication: BREAST CANCER
     Route: 048
     Dates: start: 20081212
  7. ZOLADEX [Suspect]
     Indication: BREAST CANCER
     Route: 058
     Dates: start: 20081212
  8. DIPHENHYDRAMINE HCL [Concomitant]
     Dates: start: 20070928, end: 20081104
  9. RANITIDINE HCL [Concomitant]
     Dates: start: 20070928, end: 20081104
  10. GRANISETRON HCL [Concomitant]
     Dates: start: 20070928, end: 20081104
  11. ASPIRIN [Concomitant]
     Dates: start: 20081002
  12. DIALUME [Concomitant]
     Dates: start: 20081002
  13. KETOPROFEN [Concomitant]
     Dates: start: 20081212
  14. MOMETASONE FUROATE [Concomitant]
     Dates: start: 20070928
  15. BERAPROST SODIUM [Concomitant]
     Dates: start: 20081212, end: 20081223

REACTIONS (2)
  - MALAISE [None]
  - MYOCARDIAL ISCHAEMIA [None]
